FAERS Safety Report 23229153 (Version 1)
Quarter: 2023Q4

REPORT INFORMATION
  Report Type: Spontaneous
  Country: ES (occurrence: ES)
  Receive Date: 20231127
  Receipt Date: 20231127
  Transmission Date: 20240110
  Serious: Yes (Hospitalization, Other)
  Sender: FDA-Public Use
  Company Number: ES-MYLANLABS-2018M1026021

PATIENT
  Age: 55 Year
  Sex: Male

DRUGS (4)
  1. DOXAZOSIN [Interacting]
     Active Substance: DOXAZOSIN MESYLATE
     Indication: Hypertension
     Dosage: 4 MILLIGRAM, ONCE A DAY
     Route: 048
     Dates: end: 20160308
  2. ENALAPRIL MALEATE [Interacting]
     Active Substance: ENALAPRIL MALEATE
     Indication: Hypertension
     Dosage: 20 MILLIGRAM, ONCE A DAY
     Route: 048
     Dates: end: 20160308
  3. METAMIZOLE MAGNESIUM [Interacting]
     Active Substance: METAMIZOLE MAGNESIUM
     Indication: Musculoskeletal pain
     Dosage: 575 MILLIGRAM, ONCE A DAY
     Route: 048
     Dates: start: 20160307, end: 20160307
  4. ATENOLOL [Concomitant]
     Active Substance: ATENOLOL
     Indication: Hypertension
     Dosage: 25 MILLIGRAM, ONCE A DAY
     Route: 048

REACTIONS (2)
  - Acute kidney injury [Recovered/Resolved]
  - Drug interaction [Unknown]

NARRATIVE: CASE EVENT DATE: 20160308
